FAERS Safety Report 6836729-5 (Version None)
Quarter: 2010Q3

REPORT INFORMATION
  Report Type: 
  Country: None (occurrence: None)
  Receive Date: 20100713
  Receipt Date: 20100629
  Transmission Date: 20110219
  Serious: Yes (Other)
  Sender: FDA-Public Use
  Company Number: US-MYLANLABS-2010S1011618

PATIENT
  Age: 53 Year
  Sex: Male

DRUGS (9)
  1. VERSED [Suspect]
     Indication: ANAESTHESIA
     Route: 042
  2. FENTANYL [Suspect]
     Indication: ANAESTHESIA
     Route: 042
  3. DIPRIVAN [Suspect]
     Indication: ANAESTHESIA
     Route: 042
  4. ULTANE [Suspect]
     Indication: MAINTENANCE OF ANAESTHESIA
     Dosage: 1.85 MINIMUM ALVEOLAR CONCENTRATION
     Route: 065
  5. NORMODYNE [Suspect]
     Indication: HYPERTENSION
     Route: 065
  6. ROBINUL [Concomitant]
     Route: 042
  7. ZOFRAN [Concomitant]
     Route: 042
  8. DILAUDID [Concomitant]
     Route: 042
  9. ANCEF [Concomitant]
     Route: 042

REACTIONS (1)
  - COMPARTMENT SYNDROME [None]
